FAERS Safety Report 19257261 (Version 2)
Quarter: 2021Q2

REPORT INFORMATION
  Report Type: Spontaneous
  Country: JP (occurrence: JP)
  Receive Date: 20210513
  Receipt Date: 20210518
  Transmission Date: 20210717
  Serious: Yes (Other)
  Sender: FDA-Public Use
  Company Number: JP-SAKK-2021SA156739AA

PATIENT
  Sex: Female

DRUGS (1)
  1. INSULIN LISPRO BS INJECTION SOLOSTAR HU [SANOFI] [Suspect]
     Active Substance: INSULIN LISPRO
     Indication: DIABETES MELLITUS
     Route: 058

REACTIONS (1)
  - Pneumonia [Unknown]
